FAERS Safety Report 11060339 (Version 1)
Quarter: 2015Q2

REPORT INFORMATION
  Report Type: Spontaneous
  Country: US (occurrence: US)
  Receive Date: 20150423
  Receipt Date: 20150423
  Transmission Date: 20150821
  Serious: Yes (Disabling, Congenital Anomaly, Other)
  Sender: FDA-Public Use
  Company Number: PHEH2015US006951

PATIENT
  Sex: Male

DRUGS (3)
  1. TYLENOL [Concomitant]
     Active Substance: ACETAMINOPHEN
     Indication: PRODUCT USED FOR UNKNOWN INDICATION
     Dosage: UNK UNK, PRN
     Route: 065
  2. VENTOLIN [Concomitant]
     Active Substance: ALBUTEROL SULFATE
     Indication: PRODUCT USED FOR UNKNOWN INDICATION
  3. TEGRETOL [Suspect]
     Active Substance: CARBAMAZEPINE
     Indication: PRODUCT USED FOR UNKNOWN INDICATION
     Dosage: MATERNAL DOSE: 200 MG, BID
     Route: 064

REACTIONS (15)
  - Marfan^s syndrome [Unknown]
  - Heart rate decreased [Unknown]
  - Developmental delay [Unknown]
  - Seizure [Unknown]
  - Abdominal discomfort [Unknown]
  - Gastrooesophageal reflux disease [Unknown]
  - Hypersensitivity [Unknown]
  - Body height increased [Unknown]
  - Eczema [Unknown]
  - Foetal exposure during pregnancy [Unknown]
  - Autism [Unknown]
  - Milk allergy [Unknown]
  - Infantile spitting up [Unknown]
  - Underweight [Unknown]
  - Exposure during breast feeding [Unknown]
